FAERS Safety Report 6979643-7 (Version None)
Quarter: 2010Q3

REPORT INFORMATION
  Report Type: 
  Country: None (occurrence: None)
  Receive Date: 20100910
  Receipt Date: 20100910
  Transmission Date: 20110219
  Serious: Yes (Other)
  Sender: FDA-Public Use
  Company Number: None

PATIENT
  Age: 46 Year
  Sex: Male
  Weight: 85.7298 kg

DRUGS (1)
  1. SEROQUEL [Suspect]
     Indication: BIPOLAR DISORDER
     Dosage: 300MG
     Dates: start: 20090923, end: 20091201

REACTIONS (8)
  - CHOKING [None]
  - DYSPHAGIA [None]
  - HUNGER [None]
  - MUSCULOSKELETAL STIFFNESS [None]
  - NIGHT SWEATS [None]
  - POLLAKIURIA [None]
  - PROCEDURAL PAIN [None]
  - VISUAL IMPAIRMENT [None]
